FAERS Safety Report 13280459 (Version 1)
Quarter: 2020Q3

REPORT INFORMATION
  Report Type: Report from Study
  Country: IT (occurrence: IT)
  Receive Date: 20170301
  Receipt Date: 20170301
  Transmission Date: 20201104
  Serious: Yes (Hospitalization)
  Sender: FDA-Public Use
  Company Number: IT-ROCHE-1895315

PATIENT
  Age: 29 Year
  Sex: Female
  Weight: 48 kg

DRUGS (11)
  1. DROSPIRENONE/ETHINYL ESTRADIOL [Concomitant]
     Active Substance: DROSPIRENONE\ETHINYL ESTRADIOL
  2. STILNOX [Concomitant]
     Active Substance: ZOLPIDEM TARTRATE
     Indication: INSOMNIA
     Route: 065
     Dates: start: 20151215
  3. ALECTINIB. [Suspect]
     Active Substance: ALECTINIB
     Indication: NON-SMALL CELL LUNG CANCER
     Dosage: DATE OF MOST RECENT DOSE OF ALECTINIB PRIOR TO EVENT ONSET: 10/DEC/2015
     Route: 048
     Dates: start: 20150311
  4. PANTOPRAZOLO [Concomitant]
     Active Substance: PANTOPRAZOLE SODIUM
     Indication: PROPHYLAXIS
     Route: 065
     Dates: start: 20150311
  5. EFFENTORA [Concomitant]
     Active Substance: FENTANYL CITRATE
     Indication: CHEST PAIN
     Route: 065
     Dates: start: 20150310
  6. TACHIPIRINA [Concomitant]
     Active Substance: ACETAMINOPHEN
     Indication: CHEST PAIN
     Route: 065
     Dates: start: 20150310
  7. TRANSTEC [Concomitant]
     Active Substance: BUPRENORPHINE
     Indication: CHEST PAIN
     Route: 065
     Dates: start: 20151202
  8. BACTRIM [Concomitant]
     Active Substance: SULFAMETHOXAZOLE\TRIMETHOPRIM
     Indication: ERYTHEMA
     Route: 065
     Dates: start: 20151124, end: 20151129
  9. TARGIN [Concomitant]
     Active Substance: NALOXONE HYDROCHLORIDE\OXYCODONE HYDROCHLORIDE
     Indication: CHEST PAIN
     Route: 065
     Dates: start: 20151105, end: 20151202
  10. ACICLOVIR [Concomitant]
     Active Substance: ACYCLOVIR
     Indication: HERPES ZOSTER
     Route: 065
     Dates: start: 20151212
  11. ANANASE [Concomitant]
     Active Substance: BROMELAINS
     Indication: ERYTHEMA
     Route: 065
     Dates: start: 20151202, end: 20151211

REACTIONS (1)
  - Respiratory failure [Recovered/Resolved]

NARRATIVE: CASE EVENT DATE: 20151211
